FAERS Safety Report 25501759 (Version 2)
Quarter: 2025Q3

REPORT INFORMATION
  Report Type: Report from Study
  Country: EU (occurrence: EU)
  Receive Date: 20250702
  Receipt Date: 20250907
  Transmission Date: 20251020
  Serious: Yes (Hospitalization)
  Sender: ABBVIE
  Company Number: EU-ABBVIE-6347568

PATIENT
  Age: 58 Year
  Sex: Male

DRUGS (7)
  1. SKYRIZI [Suspect]
     Active Substance: RISANKIZUMAB-RZAA
     Indication: Psoriatic arthropathy
     Route: 058
     Dates: start: 20210615
  2. HYDROCORTISONE [Concomitant]
     Active Substance: HYDROCORTISONE
     Indication: Product used for unknown indication
     Route: 048
     Dates: start: 20211010
  3. LEVOTHYROXINE [Concomitant]
     Active Substance: LEVOTHYROXINE
     Indication: Product used for unknown indication
  4. OPIPRAMOL HYDROCHLORIDE [Concomitant]
     Active Substance: OPIPRAMOL HYDROCHLORIDE
     Indication: Panic attack
  5. PANTOPRAZOLE [Concomitant]
     Active Substance: PANTOPRAZOLE
     Indication: Product used for unknown indication
     Dosage: (PANTOPRAZOLE ARISTO 40 MG
     Route: 048
     Dates: start: 20210518
  6. OPIPRAMOL HYDROCHLORIDE [Concomitant]
     Active Substance: OPIPRAMOL HYDROCHLORIDE
     Indication: Product used for unknown indication
  7. ACETAMINOPHEN [Concomitant]
     Active Substance: ACETAMINOPHEN
     Indication: Product used for unknown indication

REACTIONS (19)
  - Pituitary tumour benign [Unknown]
  - Visual field defect [Unknown]
  - Headache [Unknown]
  - Immobile [Unknown]
  - Blood luteinising hormone decreased [Unknown]
  - Blood follicle stimulating hormone decreased [Unknown]
  - Oestradiol decreased [Unknown]
  - Blood testosterone decreased [Unknown]
  - Cortisol decreased [Recovered/Resolved]
  - Panic attack [Unknown]
  - Restless legs syndrome [Unknown]
  - Staphylococcal infection [Unknown]
  - Vitamin C deficiency [Unknown]
  - Extravasation blood [Unknown]
  - Haemosiderin stain [Unknown]
  - C-reactive protein increased [Recovering/Resolving]
  - Thyroid disorder [Unknown]
  - Antiendomysial antibody positive [Unknown]
  - Blood creatine phosphokinase increased [Unknown]

NARRATIVE: CASE EVENT DATE: 20220207
